FAERS Safety Report 20776591 (Version 1)
Quarter: 2022Q2

REPORT INFORMATION
  Report Type: Spontaneous
  Country: US (occurrence: US)
  Receive Date: 20220502
  Receipt Date: 20220502
  Transmission Date: 20220720
  Serious: No
  Sender: FDA-Public Use
  Company Number: US-HORIZON THERAPEUTICS-HZN-2022-002427

PATIENT
  Sex: Female

DRUGS (1)
  1. DUEXIS [Suspect]
     Active Substance: FAMOTIDINE\IBUPROFEN
     Indication: Rheumatoid arthritis
     Dosage: FIRST DOSE 800 / 26.6 MG, TAKE 2 PILLS BY MOUTH DAILY
     Route: 048

REACTIONS (1)
  - Underdose [Unknown]
